FAERS Safety Report 5935080-5 (Version None)
Quarter: 2008Q4

REPORT INFORMATION
  Report Type: 
  Country: None (occurrence: None)
  Receive Date: 20081030
  Receipt Date: 20081023
  Transmission Date: 20090506
  Serious: Yes (Hospitalization)
  Sender: FDA-Public Use
  Company Number: JP-JNJFOC-20081004614

PATIENT

DRUGS (1)
  1. ITRIZOLE [Suspect]
     Indication: ONYCHOMYCOSIS
     Dosage: PULSE THERAPY
     Route: 048

REACTIONS (3)
  - BLOOD AMYLASE INCREASED [None]
  - HYPERGLYCAEMIA [None]
  - OEDEMA [None]
